FAERS Safety Report 5135508-7 (Version None)
Quarter: 2006Q4

REPORT INFORMATION
  Report Type: 
  Country: None (occurrence: None)
  Receive Date: 20061024
  Receipt Date: 20061024
  Transmission Date: 20070319
  Serious: Yes (Hospitalization)
  Sender: FDA-Public Use
  Company Number: None

PATIENT
  Age: 75 Year
  Sex: Male
  Weight: 103.4201 kg

DRUGS (13)
  1. FUROSEMIDE [Suspect]
     Indication: CARDIAC FAILURE CONGESTIVE
     Route: 048
  2. ATENOLOL [Suspect]
     Route: 048
  3. LISINOPRIL [Suspect]
     Route: 048
  4. ACCU-CHEK COMFORT CV [Concomitant]
  5. ATORVASTATIN CALCIUM [Concomitant]
  6. BENZONATATE [Concomitant]
  7. EZETIMIBE [Concomitant]
  8. INSULIN NPH HUMAN 100 UNIT/ML NOVOLIN N [Concomitant]
  9. INSULIN REG HUMAN 100UNIT/ML NOVOLIN R [Concomitant]
  10. POTASSIUM CL [Concomitant]
  11. PROBENECID [Concomitant]
  12. QUININE SULFATE [Concomitant]
  13. COUMADIN [Concomitant]

REACTIONS (3)
  - ASTHENIA [None]
  - DEHYDRATION [None]
  - ILL-DEFINED DISORDER [None]
